FAERS Safety Report 24122264 (Version 4)
Quarter: 2024Q4

REPORT INFORMATION
  Report Type: Spontaneous
  Country: US (occurrence: US)
  Receive Date: 20240722
  Receipt Date: 20241002
  Transmission Date: 20250115
  Serious: No
  Sender: ROCHE
  Company Number: US-ROCHE-10000026205

PATIENT
  Age: 5 Year
  Sex: Male

DRUGS (5)
  1. XOLAIR [Suspect]
     Active Substance: OMALIZUMAB
     Indication: Food allergy
     Dosage: WITH 75MG PFS
     Route: 050
     Dates: start: 20240628
  2. XOLAIR [Suspect]
     Active Substance: OMALIZUMAB
     Dosage: WITH 300MG PFS
     Route: 050
     Dates: start: 20240628
  3. XOLAIR [Suspect]
     Active Substance: OMALIZUMAB
     Dosage: WITH 300MG PFS
     Route: 050
  4. XOLAIR [Suspect]
     Active Substance: OMALIZUMAB
     Dosage: WITH 300MG PFS
     Route: 050
  5. XOLAIR [Suspect]
     Active Substance: OMALIZUMAB
     Dosage: WITH 75MG PFS
     Route: 050

REACTIONS (5)
  - Needle issue [Unknown]
  - Syringe issue [Unknown]
  - Underdose [Unknown]
  - Ill-defined disorder [Unknown]
  - Device defective [Unknown]

NARRATIVE: CASE EVENT DATE: 20240712
